FAERS Safety Report 19615165 (Version 1)
Quarter: 2021Q3

REPORT INFORMATION
  Report Type: Spontaneous
  Country: US (occurrence: US)
  Receive Date: 20210727
  Receipt Date: 20210727
  Transmission Date: 20211014
  Serious: No
  Sender: FDA-Public Use
  Company Number: US-TEVA-2020-US-1857642

PATIENT
  Age: 44 Year
  Sex: Female

DRUGS (1)
  1. AJOVY [Suspect]
     Active Substance: FREMANEZUMAB-VFRM
     Indication: MIGRAINE
     Route: 058
     Dates: start: 201910

REACTIONS (11)
  - Device issue [Unknown]
  - Needle issue [Unknown]
  - Nausea [Unknown]
  - Depressed mood [Unknown]
  - Injection site extravasation [Unknown]
  - Injection site discolouration [Unknown]
  - Device delivery system issue [Unknown]
  - Migraine [Unknown]
  - Stress [Unknown]
  - SARS-CoV-2 test positive [Unknown]
  - Syringe issue [Unknown]

NARRATIVE: CASE EVENT DATE: 20200412
